FAERS Safety Report 5326156-4 (Version None)
Quarter: 2007Q2

REPORT INFORMATION
  Report Type: 
  Country: None (occurrence: None)
  Receive Date: 20070516
  Receipt Date: 20070508
  Transmission Date: 20071010
  Serious: Yes (Hospitalization)
  Sender: FDA-Public Use
  Company Number: ZA-AVENTIS-200712074EU

PATIENT
  Age: 64 Year
  Sex: Male
  Weight: 76 kg

DRUGS (4)
  1. ENOXAPARIN SODIUM [Suspect]
     Route: 058
  2. ECOTRIN [Concomitant]
  3. CONCOR                             /00802602/ [Concomitant]
  4. AUGMENTIN                          /00756801/ [Concomitant]

REACTIONS (1)
  - PERIPHERAL ISCHAEMIA [None]
